FAERS Safety Report 10371141 (Version 4)
Quarter: 2014Q3

REPORT INFORMATION
  Report Type: Report from Study
  Country: DE (occurrence: DE)
  Receive Date: 20140808
  Receipt Date: 20140916
  Transmission Date: 20150326
  Serious: Yes (Other)
  Sender: FDA-Public Use
  Company Number: DE-NAPPMUNDI-DEU-2014-0015110

PATIENT
  Age: 51 Year
  Sex: Male
  Weight: 87 kg

DRUGS (12)
  1. LYRICA [Concomitant]
     Active Substance: PREGABALIN
     Indication: ARTHRALGIA
     Dosage: 300 MG, UNK
     Route: 048
     Dates: start: 20120806
  2. LYRICA [Concomitant]
     Active Substance: PREGABALIN
     Indication: BACK PAIN
  3. OXYCODONE HCL/NALOXONE HCL CR TAB [Suspect]
     Active Substance: NALOXONE HYDROCHLORIDE\OXYCODONE HYDROCHLORIDE
     Indication: ARTHRALGIA
     Dosage: 90 MG, BID
     Route: 048
     Dates: start: 20130130, end: 20130204
  4. OXYCODONE HCL/NALOXONE HCL CR TAB [Suspect]
     Active Substance: NALOXONE HYDROCHLORIDE\OXYCODONE HYDROCHLORIDE
     Dosage: 140 MG, DAILY
     Route: 048
     Dates: start: 20121030, end: 20121105
  5. OXYGESIC AKUT HARTKAPSELN [Suspect]
     Active Substance: OXYCODONE
     Indication: BACK PAIN
  6. AMITRIPTYLIN [Concomitant]
     Active Substance: AMITRIPTYLINE
     Indication: BACK PAIN
  7. CANDESARTAN [Concomitant]
     Active Substance: CANDESARTAN
     Indication: HYPERTENSION
     Dosage: 8 MG, UNK
     Route: 048
     Dates: start: 20130117
  8. AMITRIPTYLIN [Concomitant]
     Active Substance: AMITRIPTYLINE
     Indication: ARTHRALGIA
     Dosage: 50 MG, UNK
     Route: 048
     Dates: start: 20120806, end: 20121227
  9. OXYCODONE HCL/NALOXONE HCL CR TAB [Suspect]
     Active Substance: NALOXONE HYDROCHLORIDE\OXYCODONE HYDROCHLORIDE
     Indication: BACK PAIN
     Dosage: 160 MG, DAILY
     Route: 048
     Dates: start: 20121106, end: 20130129
  10. OXYCODONE HCL IR CAPSULES [Suspect]
     Active Substance: OXYCODONE HYDROCHLORIDE
     Indication: PAIN
     Dosage: 25 MG, PRN
     Route: 048
     Dates: start: 20121030, end: 20130108
  11. OXYGESIC AKUT HARTKAPSELN [Suspect]
     Active Substance: OXYCODONE
     Indication: ARTHRALGIA
     Dosage: 25 MG, UNK
     Route: 048
     Dates: start: 20130109, end: 20130203
  12. PANTOPRAZOLE [Concomitant]
     Active Substance: PANTOPRAZOLE SODIUM
     Indication: PROPHYLAXIS AGAINST GASTROINTESTINAL ULCER
     Dosage: 40 MG, UNK
     Route: 048
     Dates: start: 20110908

REACTIONS (3)
  - Tooth disorder [Not Recovered/Not Resolved]
  - Tooth loss [Not Recovered/Not Resolved]
  - Dental caries [Not Recovered/Not Resolved]

NARRATIVE: CASE EVENT DATE: 20130122
